FAERS Safety Report 10395252 (Version 2)
Quarter: 2014Q3

REPORT INFORMATION
  Report Type: Spontaneous
  Country: GB (occurrence: GB)
  Receive Date: 20140820
  Receipt Date: 20140829
  Transmission Date: 20150326
  Serious: Yes (Life-Threatening, Disabling)
  Sender: FDA-Public Use
  Company Number: CHPA2014GB010730

PATIENT
  Age: 51 Year
  Sex: Female
  Weight: 100 kg

DRUGS (11)
  1. THYROXINE [Concomitant]
     Active Substance: LEVOTHYROXINE
     Dosage: UNK
  2. CALCICHEW D3 [Concomitant]
     Active Substance: CALCIUM\CHOLECALCIFEROL
  3. HYDROXYCHLOROQUINE [Concomitant]
     Active Substance: HYDROXYCHLOROQUINE
     Dosage: UNK
  4. LANSOPRAZOLE. [Concomitant]
     Active Substance: LANSOPRAZOLE
  5. LAMISIL [Suspect]
     Active Substance: TERBINAFINE HYDROCHLORIDE
     Indication: SKIN DISORDER
  6. FUROSEMIDE. [Concomitant]
     Active Substance: FUROSEMIDE
  7. REFRESH OPTIVE [Concomitant]
     Active Substance: CARBOXYMETHYLCELLULOSE SODIUM\GLYCERIN
  8. LATANOPROST. [Concomitant]
     Active Substance: LATANOPROST
  9. BUPRENORPHINE [Concomitant]
     Active Substance: BUPRENORPHINE
  10. BISACODYL. [Concomitant]
     Active Substance: BISACODYL
  11. LAMISIL [Suspect]
     Active Substance: TERBINAFINE HYDROCHLORIDE
     Indication: CANDIDA INFECTION
     Dosage: UNK, BID
     Route: 061

REACTIONS (22)
  - Abasia [Unknown]
  - Lower respiratory tract infection [Recovered/Resolved with Sequelae]
  - Feeling abnormal [Unknown]
  - Paraesthesia [Unknown]
  - Dystonia [Recovered/Resolved with Sequelae]
  - Dyspnoea [Recovered/Resolved with Sequelae]
  - Malaise [Unknown]
  - Poverty of speech [Unknown]
  - Fatigue [Unknown]
  - Nervous system disorder [Not Recovered/Not Resolved]
  - Tongue movement disturbance [Unknown]
  - Amnesia [Unknown]
  - Protrusion tongue [Recovered/Resolved with Sequelae]
  - Dysgraphia [Recovered/Resolved with Sequelae]
  - Wheezing [Recovered/Resolved with Sequelae]
  - Dyskinesia [Recovered/Resolved with Sequelae]
  - Sensation of foreign body [Recovered/Resolved with Sequelae]
  - Movement disorder [Unknown]
  - Reading disorder [Recovered/Resolved with Sequelae]
  - Nasopharyngitis [Recovered/Resolved with Sequelae]
  - Memory impairment [Recovered/Resolved with Sequelae]
  - Speech disorder [Recovered/Resolved with Sequelae]

NARRATIVE: CASE EVENT DATE: 20140104
